FAERS Safety Report 11898089 (Version 1)
Quarter: 2016Q1

REPORT INFORMATION
  Report Type: Spontaneous
  Country: US (occurrence: US)
  Receive Date: 20160108
  Receipt Date: 20160108
  Transmission Date: 20160526
  Serious: No
  Sender: FDA-Public Use
  Company Number: US-DRREDDYS-USA/USA/15/0050932

PATIENT
  Age: 75 Year
  Sex: Female

DRUGS (3)
  1. CONTROL STEP 1 21MG [Suspect]
     Active Substance: NICOTINE
     Indication: SMOKING CESSATION THERAPY
     Dosage: 1 DF, QD
     Route: 062
     Dates: end: 2014
  2. PRIVATE LABEL STEP 1 21MG ACCT UNKNOWN [Suspect]
     Active Substance: NICOTINE
     Indication: SMOKING CESSATION THERAPY
     Dosage: 1 DF, QD
     Route: 062
     Dates: start: 2014, end: 2014
  3. CONTROL STEP 1 21MG [Suspect]
     Active Substance: NICOTINE
     Dosage: 1 DF, QD
     Route: 062
     Dates: start: 2014, end: 2014

REACTIONS (1)
  - Incorrect drug administration duration [Unknown]
